FAERS Safety Report 12321065 (Version 1)
Quarter: 2016Q2

REPORT INFORMATION
  Report Type: Spontaneous
  Country: US (occurrence: US)
  Receive Date: 20160502
  Receipt Date: 20160502
  Transmission Date: 20160815
  Serious: No
  Sender: FDA-Public Use
  Company Number: US-BRISTOL-MYERS SQUIBB COMPANY-21525688

PATIENT
  Age: 7 Year
  Sex: Female

DRUGS (1)
  1. ABILIFY [Suspect]
     Active Substance: ARIPIPRAZOLE
     Indication: AUTISM
     Dosage: UNK
     Route: 065
     Dates: start: 2013

REACTIONS (4)
  - Eating disorder [Unknown]
  - Choking [Unknown]
  - Vomiting [Unknown]
  - Cough [Unknown]
